FAERS Safety Report 21504348 (Version 2)
Quarter: 2022Q4

REPORT INFORMATION
  Report Type: Spontaneous
  Country: US (occurrence: US)
  Receive Date: 20221025
  Receipt Date: 20221114
  Transmission Date: 20230113
  Serious: Yes (Other)
  Sender: FDA-Public Use
  Company Number: US-009507513-2210USA007995

PATIENT
  Age: 66 Year
  Sex: Female

DRUGS (5)
  1. MOLNUPIRAVIR [Suspect]
     Active Substance: MOLNUPIRAVIR
     Indication: COVID-19 treatment
     Dosage: FOUR 200 MG CAPSULES TWICE DAILY, FOR FIVE DAYS
     Route: 048
     Dates: start: 20221005, end: 20221011
  2. FAMOTIDINE [Concomitant]
     Active Substance: FAMOTIDINE
     Dosage: 10 MG, ONCE PER DAY
  3. NORVASC [Concomitant]
     Active Substance: AMLODIPINE BESYLATE
     Dosage: 2.5 MG, ONCE PER DAY
  4. XARELTO [Concomitant]
     Active Substance: RIVAROXABAN
     Dosage: 20 MG, ONCE PER DAY
  5. ATORVASTATIN CALCIUM [Concomitant]
     Active Substance: ATORVASTATIN CALCIUM
     Dosage: 80 MG, ONCE PER DAY

REACTIONS (6)
  - Neuropathy peripheral [Recovered/Resolved]
  - COVID-19 [Not Recovered/Not Resolved]
  - Inflammation [Recovered/Resolved]
  - Insomnia [Recovered/Resolved]
  - Feeling abnormal [Not Recovered/Not Resolved]
  - Therapeutic product effect decreased [Unknown]

NARRATIVE: CASE EVENT DATE: 20221001
